FAERS Safety Report 10244918 (Version 2)
Quarter: 2014Q2

REPORT INFORMATION
  Report Type: Spontaneous
  Country: US (occurrence: US)
  Receive Date: 20140618
  Receipt Date: 20140618
  Transmission Date: 20141212
  Serious: No
  Sender: FDA-Public Use
  Company Number: US-GALDERMA-US14000965

PATIENT
  Age: 49 Year
  Sex: Female

DRUGS (9)
  1. MIRVASO (BRIMONIDINE) TOPICAL GEL, 0.33% [Suspect]
     Indication: ROSACEA
     Dosage: 0.33%
     Route: 061
     Dates: start: 20140223, end: 20140309
  2. ROSULA (SODIUM SULFACETAMIDE) [Concomitant]
     Indication: ROSACEA
     Route: 061
  3. CETAPHIL MOISTURIZING LOTION [Concomitant]
     Indication: DRY SKIN PROPHYLAXIS
     Route: 061
  4. ALMAY LIQUID FOUNDATION WITH SUNSCREEN [Concomitant]
     Indication: THERAPEUTIC SKIN CARE TOPICAL
     Route: 061
  5. PREMARIN [Concomitant]
     Indication: HORMONE REPLACEMENT THERAPY
     Dosage: 0.652 MG
     Route: 048
  6. CETAPHIL CLEANSER [Concomitant]
     Route: 061
  7. THERACAL D2000 [Concomitant]
     Dosage: 2000
  8. THERALOGIX SOLO MULTIVITAMIN [Concomitant]
  9. ZYRTEC [Concomitant]
     Indication: SEASONAL ALLERGY
     Dosage: 10 MG

REACTIONS (7)
  - Condition aggravated [Recovered/Resolved]
  - Visual impairment [Not Recovered/Not Resolved]
  - Vision blurred [Not Recovered/Not Resolved]
  - Lacrimation increased [Not Recovered/Not Resolved]
  - Paraesthesia [Not Recovered/Not Resolved]
  - Erythema [Recovered/Resolved]
  - Off label use [Recovered/Resolved]
